FAERS Safety Report 9250273 (Version 10)
Quarter: 2014Q3

REPORT INFORMATION
  Report Type: Spontaneous
  Country: US (occurrence: US)
  Receive Date: 20130424
  Receipt Date: 20140905
  Transmission Date: 20150326
  Serious: Yes (Hospitalization, Other)
  Sender: FDA-Public Use
  Company Number: US-ASTRAZENECA-2013SE27434

PATIENT
  Age: 65 Year
  Sex: Male

DRUGS (32)
  1. TUMS [Concomitant]
     Active Substance: CALCIUM CARBONATE
  2. ZOFRAN [Concomitant]
     Active Substance: ONDANSETRON HYDROCHLORIDE
     Route: 048
     Dates: start: 20120621
  3. NORVASC [Concomitant]
     Active Substance: AMLODIPINE BESYLATE
     Indication: HYPERTENSION
     Route: 048
  4. ASPIRIN. [Concomitant]
     Active Substance: ASPIRIN
     Route: 048
  5. METFORMIN [Concomitant]
     Active Substance: METFORMIN HYDROCHLORIDE
  6. REGLAN [Concomitant]
     Active Substance: METOCLOPRAMIDE HYDROCHLORIDE
     Dosage: 5 MG THREE TIMES DAILY AS NEEDED
     Route: 048
     Dates: start: 20131007
  7. NEXIUM [Suspect]
     Active Substance: ESOMEPRAZOLE MAGNESIUM
     Indication: GASTROOESOPHAGEAL REFLUX DISEASE
     Route: 048
     Dates: start: 2003
  8. METOPROLOL SUCCINATE. [Concomitant]
     Active Substance: METOPROLOL SUCCINATE
  9. PRILOSEC [Suspect]
     Active Substance: OMEPRAZOLE MAGNESIUM
     Indication: GASTROOESOPHAGEAL REFLUX DISEASE
     Route: 048
     Dates: start: 1993, end: 2003
  10. IBUPROFEN. [Concomitant]
     Active Substance: IBUPROFEN
  11. NEXIUM [Suspect]
     Active Substance: ESOMEPRAZOLE MAGNESIUM
     Indication: GASTROOESOPHAGEAL REFLUX DISEASE
     Route: 048
     Dates: start: 200210
  12. ZETIA [Concomitant]
     Active Substance: EZETIMIBE
     Route: 048
  13. TOPROL XL [Concomitant]
     Active Substance: METOPROLOL SUCCINATE
     Indication: HYPERTENSION
  14. WELLBUTRIN XL [Concomitant]
     Active Substance: BUPROPION HYDROCHLORIDE
  15. PRILOSEC [Suspect]
     Active Substance: OMEPRAZOLE MAGNESIUM
     Indication: GASTROOESOPHAGEAL REFLUX DISEASE
     Route: 048
  16. MULTIVITAMIN [Concomitant]
     Active Substance: VITAMINS
  17. CEPHALEXIN. [Concomitant]
     Active Substance: CEPHALEXIN
     Dates: start: 20051130
  18. DILAUDID [Concomitant]
     Active Substance: HYDROMORPHONE HYDROCHLORIDE
     Dosage: 1-2 TABLETS BY MOUTH EVERY FOUR HOURS AS NEEDED
     Route: 048
     Dates: start: 20130805
  19. CALTRATE [Concomitant]
     Active Substance: CALCIUM CARBONATE
  20. NEXIUM [Suspect]
     Active Substance: ESOMEPRAZOLE MAGNESIUM
     Indication: GASTROOESOPHAGEAL REFLUX DISEASE
     Route: 048
     Dates: start: 20031017
  21. PEPTO-BISMOL [Concomitant]
     Active Substance: BISMUTH SUBSALICYLATE\CALCIUM CARBONATE
  22. ACTOS [Concomitant]
     Active Substance: PIOGLITAZONE HYDROCHLORIDE
     Indication: TYPE 2 DIABETES MELLITUS
     Route: 048
  23. DILAUDID [Concomitant]
     Active Substance: HYDROMORPHONE HYDROCHLORIDE
     Dosage: 2 MG BY MOUTH EVERY FOUR HOURS AS NEEDED
     Route: 048
     Dates: start: 20131007
  24. XARELTO [Concomitant]
     Active Substance: RIVAROXABAN
     Route: 048
     Dates: start: 20131007
  25. BUPROPION [Concomitant]
     Active Substance: BUPROPION
  26. PRILOSEC [Suspect]
     Active Substance: OMEPRAZOLE MAGNESIUM
     Indication: GASTROOESOPHAGEAL REFLUX DISEASE
     Route: 048
     Dates: start: 199403
  27. TETRACYCLINE [Concomitant]
     Active Substance: TETRACYCLINE
     Indication: INFECTION
     Dates: start: 20060206
  28. CALCIUM [Concomitant]
     Active Substance: CALCIUM
  29. LIPITOR [Concomitant]
     Active Substance: ATORVASTATIN CALCIUM
  30. PROTONIX [Concomitant]
     Active Substance: PANTOPRAZOLE SODIUM
     Route: 048
     Dates: start: 20131007
  31. CRESTOR [Concomitant]
     Active Substance: ROSUVASTATIN CALCIUM
     Indication: HYPERCHOLESTEROLAEMIA
     Route: 048
     Dates: start: 20131007
  32. ALLEGRA-D [Concomitant]
     Active Substance: FEXOFENADINE\PSEUDOEPHEDRINE

REACTIONS (20)
  - Fall [Unknown]
  - Exostosis [Unknown]
  - Spinal osteoarthritis [Unknown]
  - Hiatus hernia [Unknown]
  - Small intestinal obstruction [Unknown]
  - Joint dislocation [Unknown]
  - Coronary artery disease [Unknown]
  - Peripheral sensory neuropathy [Unknown]
  - Hip fracture [Unknown]
  - Osteoporosis [Unknown]
  - Type 2 diabetes mellitus [Unknown]
  - Spondylolisthesis [Unknown]
  - Multiple fractures [Unknown]
  - Bone disorder [Unknown]
  - Intervertebral disc degeneration [Unknown]
  - Nausea [Unknown]
  - Pharyngo-oesophageal diverticulum [Unknown]
  - Urinary tract obstruction [Unknown]
  - Depression [Unknown]
  - Spinal column stenosis [Unknown]

NARRATIVE: CASE EVENT DATE: 2003
